FAERS Safety Report 17873304 (Version 3)
Quarter: 2020Q3

REPORT INFORMATION
  Report Type: Report from Study
  Country: None (occurrence: US)
  Receive Date: 20200608
  Receipt Date: 20200724
  Transmission Date: 20201103
  Serious: Yes (Other)
  Sender: FDA-Public Use
  Company Number: US-ABBVIE-20K-163-3432935-00

PATIENT
  Sex: Male

DRUGS (1)
  1. SKYRIZI [Suspect]
     Active Substance: RISANKIZUMAB-RZAA
     Indication: PSORIASIS
     Route: 058

REACTIONS (9)
  - Spinal fusion surgery [Recovering/Resolving]
  - Abscess [Unknown]
  - Swelling [Recovering/Resolving]
  - Spinal disorder [Unknown]
  - Hypoaesthesia [Unknown]
  - Hypertension [Unknown]
  - Intervertebral disc operation [Recovering/Resolving]
  - Wound [Recovering/Resolving]
  - Pyrexia [Recovered/Resolved]

NARRATIVE: CASE EVENT DATE: 2020
